FAERS Safety Report 10667095 (Version 2)
Quarter: 2015Q1

REPORT INFORMATION
  Report Type: Spontaneous
  Country: US (occurrence: None)
  Receive Date: 20141218
  Receipt Date: 20150114
  Transmission Date: 20150720
  Serious: Yes (Other)
  Sender: FDA-Public Use
  Company Number: 2014-US-016359

PATIENT
  Age: 40 Year
  Sex: Female
  Weight: 77.1 kg

DRUGS (4)
  1. XYREM [Suspect]
     Active Substance: SODIUM OXYBATE
     Indication: INSOMNIA
     Route: 048
     Dates: start: 201411, end: 2014
  2. LOESTRIN (ETHINYLESTRADIOL, NORETHISTERONE ACETATE) [Concomitant]
  3. WELLBUTRIN [Suspect]
     Active Substance: BUPROPION HYDROCHLORIDE
     Indication: PRODUCT USED FOR UNKNOWN INDICATION
     Dates: end: 2014
  4. FIBER GUMMY (FIBER) [Concomitant]

REACTIONS (3)
  - Swelling face [None]
  - Off label use [None]
  - Urticaria [None]

NARRATIVE: CASE EVENT DATE: 20141207
